FAERS Safety Report 18365524 (Version 1)
Quarter: 2020Q4

REPORT INFORMATION
  Report Type: Spontaneous
  Country: US (occurrence: US)
  Receive Date: 20201009
  Receipt Date: 20201009
  Transmission Date: 20210114
  Serious: Yes (Other)
  Sender: FDA-Public Use
  Company Number: US-BAYER-2020-211191

PATIENT
  Sex: Female

DRUGS (2)
  1. BENEFIBER [Concomitant]
     Active Substance: STARCH, WHEAT
  2. MIRALAX [Suspect]
     Active Substance: POLYETHYLENE GLYCOL 3350
     Route: 065

REACTIONS (5)
  - Drug dependence [Unknown]
  - Mood altered [Unknown]
  - Nutritional condition abnormal [Unknown]
  - Constipation [None]
  - Blood electrolytes abnormal [Unknown]
